FAERS Safety Report 9333703 (Version 1)
Quarter: 2013Q2

REPORT INFORMATION
  Report Type: Spontaneous
  Country: US (occurrence: US)
  Receive Date: 20130606
  Receipt Date: 20130606
  Transmission Date: 20140414
  Serious: No
  Sender: FDA-Public Use
  Company Number: US-AMGEN-USASP2012081741

PATIENT
  Age: 68 Year
  Sex: Female

DRUGS (11)
  1. PROLIA [Suspect]
     Indication: OSTEOPOROSIS
     Dosage: UNK
     Dates: start: 20121105
  2. LISINOPRIL [Concomitant]
  3. METOPROLOL [Concomitant]
  4. AMLODIPINE [Concomitant]
  5. FUROSEMIDE [Concomitant]
  6. WARFARIN [Concomitant]
  7. PRAVASTATIN [Concomitant]
  8. ASPIRIN [Concomitant]
     Dosage: 81 MG, QD
  9. OSCAL D                            /00944201/ [Concomitant]
  10. IRON [Concomitant]
     Dosage: 325 MG, QD
  11. CENTRUM SILVER                     /02363801/ [Concomitant]

REACTIONS (1)
  - Pain in jaw [Unknown]
